FAERS Safety Report 25288556 (Version 1)
Quarter: 2025Q2

REPORT INFORMATION
  Report Type: Spontaneous
  Country: US (occurrence: US)
  Receive Date: 20250509
  Receipt Date: 20250509
  Transmission Date: 20250717
  Serious: Yes (Other)
  Sender: PFIZER
  Company Number: US-PFIZER INC-202500096761

PATIENT
  Age: 78 Year
  Sex: Female

DRUGS (2)
  1. XELJANZ XR [Suspect]
     Active Substance: TOFACITINIB CITRATE
     Indication: Rheumatoid arthritis
     Dosage: 11 MG, DAILY
     Dates: start: 20160414, end: 201607
  2. XELJANZ XR [Suspect]
     Active Substance: TOFACITINIB CITRATE
     Dosage: TAKE ONE TABLET BY MOUTH ONCE DAILY
     Route: 048
     Dates: start: 201610

REACTIONS (7)
  - Polyarthritis [Unknown]
  - Therapeutic product effect incomplete [Unknown]
  - Arthritis [Unknown]
  - Red blood cell sedimentation rate abnormal [Unknown]
  - Anaemia [Not Recovered/Not Resolved]
  - Tendon disorder [Unknown]
  - Tenosynovitis [Unknown]
